FAERS Safety Report 5509149-3 (Version None)
Quarter: 2007Q4

REPORT INFORMATION
  Report Type: 
  Country: None (occurrence: None)
  Receive Date: 20071107
  Receipt Date: 20071031
  Transmission Date: 20080405
  Serious: Yes (Other)
  Sender: FDA-Public Use
  Company Number: GB-PURDUE-GBR_2007_0003408

PATIENT
  Age: 30 Year
  Sex: Female
  Weight: 72 kg

DRUGS (8)
  1. MORPHINE SULFATE [Suspect]
     Indication: PAIN
     Route: 048
  2. CHLORPHENIRAMINE TAB [Suspect]
     Indication: PRURITUS
     Route: 042
  3. GENTAMICIN [Suspect]
     Indication: DRUG USE FOR UNKNOWN INDICATION
     Route: 042
  4. METRONIDAZOLE [Suspect]
     Indication: DRUG USE FOR UNKNOWN INDICATION
     Route: 042
  5. PARACETAMOL [Suspect]
     Indication: PAIN
     Route: 065
  6. SODIUM LACTATE COMPOUND INJECTION [Concomitant]
     Indication: DRUG USE FOR UNKNOWN INDICATION
     Dosage: 80 ML/HR, UNK
     Route: 042
  7. CYCLOSPORINE [Concomitant]
     Indication: PSORIASIS
     Route: 048
  8. DEXAMETHASONE [Concomitant]
     Indication: MATERNAL THERAPY TO ENHANCE FOETAL LUNG MATURITY
     Route: 065

REACTIONS (11)
  - BLOOD ALBUMIN INCREASED [None]
  - BLOOD CALCIUM INCREASED [None]
  - CAESAREAN SECTION [None]
  - DRUG EXPOSURE DURING PREGNANCY [None]
  - FACE OEDEMA [None]
  - GENERALISED OEDEMA [None]
  - HEART RATE INCREASED [None]
  - HYPERPROTEINAEMIA [None]
  - PSORIASIS [None]
  - PYREXIA [None]
  - SOMNOLENCE [None]
